FAERS Safety Report 20369734 (Version 1)
Quarter: 2022Q1

REPORT INFORMATION
  Report Type: Other
  Country: RO (occurrence: None)
  Receive Date: 20220124
  Receipt Date: 20220124
  Transmission Date: 20220423
  Serious: Yes (Other)
  Sender: FDA-Public Use
  Company Number: RO-ROCHE-3001000

PATIENT
  Age: 42 Year
  Sex: Male

DRUGS (8)
  1. TOCILIZUMAB [Suspect]
     Active Substance: TOCILIZUMAB
     Indication: COVID-19 pneumonia
     Route: 042
  2. CEFTRIAXONE [Suspect]
     Active Substance: CEFTRIAXONE
     Indication: COVID-19 pneumonia
     Route: 065
  3. DEXAMETHASONE [Suspect]
     Active Substance: DEXAMETHASONE
     Indication: COVID-19 pneumonia
     Route: 065
  4. FAVIPIRAVIR [Concomitant]
     Active Substance: FAVIPIRAVIR
     Indication: COVID-19 pneumonia
  5. REMDESIVIR [Concomitant]
     Active Substance: REMDESIVIR
     Indication: COVID-19 pneumonia
  6. VANCOMYCIN [Concomitant]
     Active Substance: VANCOMYCIN
     Indication: Bacterial sepsis
     Route: 042
  7. MEROPENEM [Concomitant]
     Active Substance: MEROPENEM
     Indication: Bacterial sepsis
     Route: 042
  8. FLUCONAZOLE [Concomitant]
     Active Substance: FLUCONAZOLE
     Indication: Bacterial sepsis
     Route: 048

REACTIONS (4)
  - Pulmonary cavitation [Unknown]
  - Off label use [Unknown]
  - Off label use [Unknown]
  - COVID-19 [Recovered/Resolved]
